FAERS Safety Report 24336856 (Version 1)
Quarter: 2024Q3

REPORT INFORMATION
  Report Type: Spontaneous
  Country: CN (occurrence: CN)
  Receive Date: 20240919
  Receipt Date: 20240919
  Transmission Date: 20241017
  Serious: Yes (Hospitalization)
  Sender: NOVAST
  Company Number: CN-NOVAST LABORATORIES INC.-2024NOV000299

PATIENT
  Age: 58 Year
  Sex: Female

DRUGS (1)
  1. ZOLEDRONIC ACID [Suspect]
     Active Substance: ZOLEDRONIC ACID
     Indication: Osteoporosis
     Dosage: 5 MILLIGRAM, INFUSION
     Route: 042
     Dates: start: 20230823

REACTIONS (2)
  - Sepsis [Recovering/Resolving]
  - Product use in unapproved indication [Unknown]
